FAERS Safety Report 5271088-3 (Version None)
Quarter: 2007Q1

REPORT INFORMATION
  Report Type: 
  Country: None (occurrence: None)
  Receive Date: 20070321
  Receipt Date: 20070314
  Transmission Date: 20070707
  Serious: Yes (Other)
  Sender: FDA-Public Use
  Company Number: BE-GLAXOSMITHKLINE-B0461298A

PATIENT
  Age: 69 Year
  Sex: Male
  Weight: 78.8 kg

DRUGS (6)
  1. REQUIP [Suspect]
     Indication: PARKINSON'S DISEASE
     Dosage: 2MG THREE TIMES PER DAY
     Route: 048
     Dates: start: 20060701, end: 20070301
  2. GLUCONORM [Concomitant]
     Dosage: 30MG THREE TIMES PER DAY
     Route: 048
     Dates: start: 20010101
  3. PROLOPA [Concomitant]
     Indication: PARKINSON'S DISEASE
     Route: 048
     Dates: start: 20030101
  4. PERINDOPRIL ERBUMINE [Concomitant]
     Indication: HYPERTENSION
     Dosage: 4MG PER DAY
     Route: 048
  5. PIRACETAM [Concomitant]
     Dosage: 1200MG TWICE PER DAY
     Route: 048
  6. BEVIPLEX [Concomitant]
     Route: 048

REACTIONS (18)
  - AGGRESSION [None]
  - BALANCE DISORDER [None]
  - BRADYKINESIA [None]
  - CAROTID BRUIT [None]
  - COORDINATION ABNORMAL [None]
  - DEPRESSED MOOD [None]
  - DRUG INEFFECTIVE [None]
  - ELECTROENCEPHALOGRAM ABNORMAL [None]
  - GAIT DISTURBANCE [None]
  - HYPOACUSIS [None]
  - HYPOREFLEXIA [None]
  - IRRITABILITY [None]
  - MASKED FACIES [None]
  - MOOD ALTERED [None]
  - MUSCLE RIGIDITY [None]
  - SLUGGISHNESS [None]
  - THYROID NEOPLASM [None]
  - TREMOR [None]
